FAERS Safety Report 5904182-1 (Version None)
Quarter: 2008Q4

REPORT INFORMATION
  Report Type: 
  Country: None (occurrence: None)
  Receive Date: 20081001
  Receipt Date: 20080923
  Transmission Date: 20090506
  Serious: Yes (Other)
  Sender: FDA-Public Use
  Company Number: GB-TEVA-177840ISR

PATIENT
  Age: 16 Year
  Sex: Male

DRUGS (4)
  1. FLUOXETINE [Suspect]
     Indication: OBSESSIVE-COMPULSIVE DISORDER
     Dates: start: 19980101
  2. FLUOXETINE [Interacting]
     Indication: TOURETTE'S DISORDER
  3. MODAFINIL [Interacting]
     Indication: NARCOLEPSY
     Route: 048
     Dates: start: 20080501
  4. MODAFINIL [Interacting]
     Route: 048

REACTIONS (5)
  - CONDITION AGGRAVATED [None]
  - DRUG INTERACTION [None]
  - OBSESSIVE-COMPULSIVE DISORDER [None]
  - TIC [None]
  - TOURETTE'S DISORDER [None]
